FAERS Safety Report 6451464-3 (Version None)
Quarter: 2009Q4

REPORT INFORMATION
  Report Type: 
  Country: None (occurrence: None)
  Receive Date: 20091123
  Receipt Date: 20090312
  Transmission Date: 20100525
  Serious: No
  Sender: FDA-Public Use
  Company Number: US-BRISTOL-MYERS SQUIBB COMPANY-14540900

PATIENT
  Age: 83 Year
  Sex: Female
  Weight: 61 kg

DRUGS (1)
  1. AVALIDE [Suspect]
     Indication: HYPERTENSION
     Dates: start: 20090303

REACTIONS (1)
  - DIARRHOEA [None]
